FAERS Safety Report 10904103 (Version 1)
Quarter: 2015Q1

REPORT INFORMATION
  Report Type: Spontaneous
  Country: CH (occurrence: None)
  Receive Date: 20150306
  Receipt Date: 20150306
  Transmission Date: 20150721
  Serious: Yes (Other)
  Sender: FDA-Public Use
  Company Number: 20150120

PATIENT
  Age: 71 Year
  Sex: Female

DRUGS (2)
  1. VENOFER [Suspect]
     Active Substance: IRON SUCROSE
     Indication: HYPOCHROMIC ANAEMIA
     Dosage: 2 DOSES
     Route: 041
     Dates: start: 20150114, end: 20150115
  2. VENOFER [Suspect]
     Active Substance: IRON SUCROSE
     Indication: IRON DEFICIENCY ANAEMIA
     Dosage: 2 DOSES
     Route: 041
     Dates: start: 20150114, end: 20150115

REACTIONS (6)
  - Injection site extravasation [None]
  - Procedural complication [None]
  - Blister [None]
  - Infusion site discolouration [None]
  - Injection site pain [None]
  - Oedema peripheral [None]

NARRATIVE: CASE EVENT DATE: 20150115
